FAERS Safety Report 16457867 (Version 1)
Quarter: 2019Q2

REPORT INFORMATION
  Report Type: Report from Study
  Country: ES (occurrence: ES)
  Receive Date: 20190620
  Receipt Date: 20190620
  Transmission Date: 20190711
  Serious: Yes (Hospitalization)
  Sender: FDA-Public Use
  Company Number: ES-PFIZER INC-2019257595

PATIENT
  Age: 68 Year
  Sex: Male

DRUGS (6)
  1. BICALUTAMIDA [Concomitant]
     Active Substance: BICALUTAMIDE
     Indication: NEOPLASM PROSTATE
     Dosage: 50 MG, EVERY DAY
     Route: 048
     Dates: start: 201901
  2. DENOSUMAB [Concomitant]
     Active Substance: DENOSUMAB
     Indication: OSTEOPOROSIS
     Dosage: 10 MG, EVERY MONTH
     Route: 058
     Dates: start: 20181220
  3. CEFTRIAXONE. [Interacting]
     Active Substance: CEFTRIAXONE
     Indication: LIVER ABSCESS
     Dosage: 1 G, ONCE EVERY DAY
     Route: 042
     Dates: start: 20190219
  4. ERTAPENEM. [Interacting]
     Active Substance: ERTAPENEM SODIUM
     Indication: LIVER ABSCESS
     Dosage: 1 G, ONCE EVERY DAY
     Route: 042
     Dates: start: 20190215, end: 20190218
  5. MEROPENEM. [Suspect]
     Active Substance: MEROPENEM
     Indication: LIVER ABSCESS
     Dosage: 3 G, ONCE EVERY DAY
     Route: 042
     Dates: start: 20190213, end: 20190214
  6. DECAPEPTYL (ACETATE) [Concomitant]
     Active Substance: TRIPTORELIN ACETATE
     Indication: NEOPLASM PROSTATE
     Dosage: 3.75 MG, EVERY MONTH
     Route: 030
     Dates: start: 201901

REACTIONS (2)
  - Clostridium difficile colitis [Recovered/Resolved]
  - Drug interaction [Unknown]

NARRATIVE: CASE EVENT DATE: 20190221
